FAERS Safety Report 5512859-5 (Version None)
Quarter: 2007Q4

REPORT INFORMATION
  Report Type: 
  Country: None (occurrence: None)
  Receive Date: 20071112
  Receipt Date: 20071109
  Transmission Date: 20080405
  Serious: Yes (Hospitalization)
  Sender: FDA-Public Use
  Company Number: A0693106A

PATIENT
  Age: 34 Year
  Sex: Female

DRUGS (2)
  1. TUMS [Suspect]
     Route: 065
  2. PRENATAL VITAMINS [Suspect]
     Indication: DRUG USE FOR UNKNOWN INDICATION
     Route: 065

REACTIONS (5)
  - BLOOD CALCIUM INCREASED [None]
  - DRUG EXPOSURE DURING PREGNANCY [None]
  - GENERAL PHYSICAL HEALTH DETERIORATION [None]
  - MULTI-ORGAN FAILURE [None]
  - PANCREATITIS ACUTE [None]
